APPROVED DRUG PRODUCT: SODIUM FLUORIDE F-18
Active Ingredient: SODIUM FLUORIDE F-18
Strength: 10-91.5mCi/ML
Dosage Form/Route: INJECTABLE;INTRAVENOUS
Application: A203605 | Product #001
Applicant: MAYO CLINIC PET RADIOCHEMISTRY FACILITY
Approved: Jun 28, 2013 | RLD: No | RS: Yes | Type: RX